FAERS Safety Report 12576533 (Version 1)
Quarter: 2016Q3

REPORT INFORMATION
  Report Type: Spontaneous
  Country: IT (occurrence: IT)
  Receive Date: 20160720
  Receipt Date: 20160720
  Transmission Date: 20161109
  Serious: Yes (Hospitalization)
  Sender: FDA-Public Use
  Company Number: IT-MYLANLABS-2016M1029918

PATIENT

DRUGS (2)
  1. CABERGOLINE. [Suspect]
     Active Substance: CABERGOLINE
     Dosage: 0.25 MG/WEEK
     Route: 048
     Dates: start: 201310
  2. CABERGOLINE. [Suspect]
     Active Substance: CABERGOLINE
     Indication: PROLACTIN-PRODUCING PITUITARY TUMOUR
     Dosage: THE DOSE WAS FURTHER REDUCED TO 0.25 MG/WEEK
     Route: 048
     Dates: start: 201306

REACTIONS (2)
  - Mania [Recovering/Resolving]
  - Paranoid personality disorder [Recovering/Resolving]
